FAERS Safety Report 20138491 (Version 11)
Quarter: 2024Q2

REPORT INFORMATION
  Report Type: Spontaneous
  Country: US (occurrence: US)
  Receive Date: 20211202
  Receipt Date: 20240429
  Transmission Date: 20240716
  Serious: Yes (Hospitalization, Other)
  Sender: FDA-Public Use
  Company Number: US-HORIZON THERAPEUTICS-HZN-2021-007350

PATIENT

DRUGS (2)
  1. RAYOS [Suspect]
     Active Substance: PREDNISONE
     Indication: Rheumatoid arthritis
     Dosage: 5 MG (2 TABLETS), QD AT 10PM
     Route: 048
     Dates: start: 20201021, end: 20240414
  2. RAYOS [Suspect]
     Active Substance: PREDNISONE
     Indication: Multifocal fibrosclerosis
     Dosage: 5 MG
     Route: 048

REACTIONS (18)
  - Diabetes mellitus [Unknown]
  - Catheterisation cardiac [Unknown]
  - Glycosylated haemoglobin increased [Unknown]
  - Illness [Unknown]
  - Foreign body in gastrointestinal tract [Unknown]
  - Pain [Unknown]
  - Musculoskeletal stiffness [Unknown]
  - Product dose omission issue [Unknown]
  - Intentional underdose [Unknown]
  - Arthritis [Unknown]
  - Pain in extremity [Unknown]
  - Musculoskeletal stiffness [Unknown]
  - Back pain [Unknown]
  - Arthralgia [Unknown]
  - Neck pain [Unknown]
  - Product use issue [Unknown]
  - Malaise [Unknown]
  - Oedema peripheral [Unknown]

NARRATIVE: CASE EVENT DATE: 20211114
